FAERS Safety Report 8341798-X (Version None)
Quarter: 2012Q2

REPORT INFORMATION
  Report Type: 
  Country: None (occurrence: None)
  Receive Date: 20120507
  Receipt Date: 20120424
  Transmission Date: 20120825
  Serious: Yes (Hospitalization, Other)
  Sender: FDA-Public Use
  Company Number: US-ACTELION-A-NJ2008-22125

PATIENT

DRUGS (28)
  1. LISINOPRIL [Concomitant]
  2. NEXIUM [Concomitant]
  3. COUMADIN [Concomitant]
  4. TRACLEER [Suspect]
     Indication: PULMONARY ARTERIAL HYPERTENSION
     Dosage: 125 MG, BID
     Route: 048
     Dates: start: 20080101
  5. TRACLEER [Suspect]
     Dosage: 62.5 MG, BID
     Route: 048
     Dates: start: 20080718
  6. VERAPAMIL [Concomitant]
  7. SINGULAIR [Concomitant]
  8. NEURONTIN [Concomitant]
  9. DIGOXIN [Concomitant]
  10. METFORMIN HCL [Concomitant]
  11. TRACLEER [Suspect]
     Dosage: 125 MG, BID
     Route: 048
  12. PLAVIX [Concomitant]
  13. LASIX [Concomitant]
  14. DULCOLAX [Concomitant]
  15. GAVISCON [Concomitant]
  16. ULTRAM [Concomitant]
  17. TRACLEER [Suspect]
     Dosage: 62.5 MG, BID
     Route: 048
     Dates: start: 20080101, end: 20080101
  18. MIRALAX [Concomitant]
  19. OXYGEN [Concomitant]
  20. SPIRONOLACTONE [Concomitant]
  21. VITAMIN B-12 [Concomitant]
  22. PROZAC [Concomitant]
  23. PREDNISONE [Concomitant]
  24. DUONEB [Concomitant]
  25. SYMBICORT [Concomitant]
  26. MORPHINE SULFATE [Concomitant]
  27. ALLOPURINOL [Concomitant]
  28. ZOLOFT [Concomitant]

REACTIONS (11)
  - NON-CARDIAC CHEST PAIN [None]
  - HAEMOGLOBIN DECREASED [None]
  - DRUG INTERACTION [None]
  - HEADACHE [None]
  - SYNCOPE [None]
  - DYSPNOEA [None]
  - CARDIAC FAILURE CONGESTIVE [None]
  - ANAEMIA [None]
  - SINUSITIS [None]
  - DEHYDRATION [None]
  - RENAL FAILURE ACUTE [None]
